FAERS Safety Report 5448985-9 (Version None)
Quarter: 2007Q3

REPORT INFORMATION
  Report Type: 
  Country: None (occurrence: None)
  Receive Date: 20070911
  Receipt Date: 20070831
  Transmission Date: 20080115
  Serious: Yes (Hospitalization)
  Sender: FDA-Public Use
  Company Number: GB-ROCHE-515528

PATIENT
  Age: 14 Month
  Sex: Male
  Weight: 12.5 kg

DRUGS (2)
  1. CEFTRIAXONE [Suspect]
     Indication: SEPSIS
     Route: 042
     Dates: start: 20061226, end: 20061229
  2. SYTRON [Concomitant]

REACTIONS (1)
  - PANCYTOPENIA [None]
